FAERS Safety Report 6032699-0 (Version None)
Quarter: 2009Q1

REPORT INFORMATION
  Report Type: 
  Country: None (occurrence: None)
  Receive Date: 20090107
  Receipt Date: 20081222
  Transmission Date: 20090719
  Serious: Yes (Death, Hospitalization)
  Sender: FDA-Public Use
  Company Number: DSA_32966_2008

PATIENT
  Age: 46 Year
  Sex: Male

DRUGS (4)
  1. DILTIAZEM HCL [Suspect]
     Indication: INTENTIONAL OVERDOSE
     Dosage: (15-20 TABLETS, NOT THE PRESCRIBED AMOUNT, ORAL
     Route: 048
     Dates: start: 20070101, end: 20070101
  2. NORDAZEPAM [Suspect]
     Indication: DRUG USE FOR UNKNOWN INDICATION
     Dosage: (DF)
     Dates: start: 20070101, end: 20070101
  3. LITHIUM [Concomitant]
  4. ZIPRASIDONE HCL [Concomitant]

REACTIONS (9)
  - ANOXIC ENCEPHALOPATHY [None]
  - BRADYCARDIA [None]
  - CARDIAC ARREST [None]
  - COMPLETED SUICIDE [None]
  - DRUG INEFFECTIVE [None]
  - ELECTROCARDIOGRAM QRS COMPLEX PROLONGED [None]
  - HYPOTENSION [None]
  - MULTI-ORGAN FAILURE [None]
  - OVERDOSE [None]
